FAERS Safety Report 11021813 (Version 3)
Quarter: 2015Q2

REPORT INFORMATION
  Report Type: Spontaneous
  Country: BR (occurrence: BR)
  Receive Date: 20150413
  Receipt Date: 20150512
  Transmission Date: 20150821
  Serious: Yes (Death, Other)
  Sender: FDA-Public Use
  Company Number: BR-PFIZER INC-2015124048

PATIENT
  Age: 74 Year
  Sex: Male
  Weight: 80 kg

DRUGS (4)
  1. FRONTAL [Suspect]
     Active Substance: ALPRAZOLAM
     Indication: SLEEP DISORDER
     Dosage: 0.5 MG, AT NIGHT
     Route: 048
     Dates: start: 20091028
  2. DIENPAX [Concomitant]
     Active Substance: DIAZEPAM
     Indication: SLEEP DISORDER
     Dosage: 1 TABLET AT NIGHT
     Dates: start: 2008, end: 2009
  3. CARBAMAZEPINE. [Concomitant]
     Active Substance: CARBAMAZEPINE
     Dosage: UNK
  4. DIAZEPAM. [Concomitant]
     Active Substance: DIAZEPAM
     Dosage: UNK

REACTIONS (6)
  - Pneumonia [Fatal]
  - Cardiac disorder [Fatal]
  - Respiratory disorder [Unknown]
  - General physical health deterioration [Unknown]
  - Cough [Unknown]
  - Respiratory failure [Fatal]
